FAERS Safety Report 4917138-2 (Version None)
Quarter: 2006Q1

REPORT INFORMATION
  Report Type: 
  Country: None (occurrence: None)
  Receive Date: 20060221
  Receipt Date: 20060127
  Transmission Date: 20060701
  Serious: Yes (Death)
  Sender: FDA-Public Use
  Company Number: JP-AVENTIS-200610285JP

PATIENT
  Age: 69 Year
  Sex: Male
  Weight: 59 kg

DRUGS (3)
  1. TAXOTERE [Suspect]
     Indication: NEOPLASM MALIGNANT
     Route: 041
     Dates: start: 20051219, end: 20051219
  2. BRIPLATIN [Concomitant]
     Indication: NEOPLASM MALIGNANT
     Dates: start: 20051222, end: 20051222
  3. FLUOROURACIL [Concomitant]
     Indication: NEOPLASM MALIGNANT
     Dates: start: 20051219, end: 20051223

REACTIONS (8)
  - ACUTE RESPIRATORY DISTRESS SYNDROME [None]
  - ATELECTASIS [None]
  - BACK PAIN [None]
  - CARDIO-RESPIRATORY ARREST [None]
  - GASTRITIS [None]
  - PLEURAL EFFUSION [None]
  - PYREXIA [None]
  - TREMOR [None]
